FAERS Safety Report 7743349-7 (Version None)
Quarter: 2011Q3

REPORT INFORMATION
  Report Type: 
  Country: None (occurrence: None)
  Receive Date: 20110826
  Receipt Date: 20110812
  Transmission Date: 20111222
  Serious: Yes (Hospitalization, Congenital Anomaly)
  Sender: FDA-Public Use
  Company Number: DSA_47439_2011

PATIENT
  Sex: Male

DRUGS (1)
  1. WELLBUTRIN [Suspect]
     Indication: PRODUCT USED FOR UNKNOWN INDICATION
     Dosage: (DF TRANSPLACENTAL)
     Route: 064

REACTIONS (10)
  - GASTROSTOMY TUBE INSERTION [None]
  - HEART DISEASE CONGENITAL [None]
  - EMOTIONAL DISORDER [None]
  - DEVELOPMENTAL DELAY [None]
  - MENTAL RETARDATION [None]
  - PAIN [None]
  - SCAR [None]
  - DEFORMITY [None]
  - MATERNAL DRUGS AFFECTING FOETUS [None]
  - ANXIETY [None]
